FAERS Safety Report 24107575 (Version 1)
Quarter: 2024Q3

REPORT INFORMATION
  Report Type: Spontaneous
  Country: US (occurrence: US)
  Receive Date: 20240718
  Receipt Date: 20240718
  Transmission Date: 20241016
  Serious: No
  Sender: AMGEN
  Company Number: US-AMGEN-USASP2024140881

PATIENT
  Sex: Male

DRUGS (1)
  1. RAVICTI [Suspect]
     Active Substance: GLYCEROL PHENYLBUTYRATE
     Indication: Illness
     Dosage: 3 MILLILITER, TID
     Route: 048

REACTIONS (2)
  - Periorbital swelling [Unknown]
  - Off label use [Unknown]
